FAERS Safety Report 14374029 (Version 1)
Quarter: 2018Q1

REPORT INFORMATION
  Report Type: Spontaneous
  Country: US (occurrence: US)
  Receive Date: 20180111
  Receipt Date: 20180111
  Transmission Date: 20180509
  Serious: Yes (Other)
  Sender: FDA-Public Use
  Company Number: US-INGENUS PHARMACEUTICALS NJ, LLC-ING201801-000003

PATIENT
  Age: 54 Year
  Sex: Male

DRUGS (10)
  1. LABETALOL [Concomitant]
     Active Substance: LABETALOL\LABETALOL HYDROCHLORIDE
  2. COSOPT [Concomitant]
     Active Substance: DORZOLAMIDE HYDROCHLORIDE\TIMOLOL MALEATE
  3. ALLOPURINOL. [Concomitant]
     Active Substance: ALLOPURINOL
  4. CAPTOPRIL. [Concomitant]
     Active Substance: CAPTOPRIL
  5. LASIX [Concomitant]
     Active Substance: FUROSEMIDE
  6. PREDNISONE. [Concomitant]
     Active Substance: PREDNISONE
  7. ENALAPRIL [Concomitant]
     Active Substance: ENALAPRIL
  8. GENVIR [Concomitant]
  9. PROBENECID AND COLCHICINE [Suspect]
     Active Substance: COLCHICINE\PROBENECID
     Indication: GOUT
     Route: 048
  10. KALETRA [Concomitant]
     Active Substance: LOPINAVIR\RITONAVIR

REACTIONS (3)
  - Liver function test abnormal [Unknown]
  - Hepatotoxicity [Unknown]
  - Diarrhoea [Unknown]
